FAERS Safety Report 24345116 (Version 2)
Quarter: 2024Q3

REPORT INFORMATION
  Report Type: Spontaneous
  Country: US (occurrence: US)
  Receive Date: 20240920
  Receipt Date: 20240923
  Transmission Date: 20241017
  Serious: No
  Sender: NOVARTIS
  Company Number: US-002147023-NVSC2024US188128

PATIENT
  Age: 67 Year
  Sex: Male

DRUGS (1)
  1. LEQVIO [Suspect]
     Active Substance: INCLISIRAN SODIUM
     Indication: Blood cholesterol increased
     Dosage: 284 MG (THEY WERE ON 3RD SHOT OF LEQVIO. TOOK 1ST SHOT THEN AFTER 3 MONTHS ANOTHER THEN EVERY 6 MONT
     Route: 058

REACTIONS (1)
  - Drug ineffective [Unknown]
